FAERS Safety Report 9144345 (Version 4)
Quarter: 2013Q3

REPORT INFORMATION
  Report Type: Report from Study
  Country: BR (occurrence: BR)
  Receive Date: 20130306
  Receipt Date: 20130829
  Transmission Date: 20140515
  Serious: Yes (Death, Hospitalization, Other)
  Sender: FDA-Public Use
  Company Number: BR-ROCHE-1198076

PATIENT
  Age: 44 Year
  Sex: Female
  Weight: 75 kg

DRUGS (9)
  1. XOLAIR [Suspect]
     Indication: ASTHMA
     Route: 058
     Dates: start: 201010, end: 201305
  2. XOLAIR [Suspect]
     Indication: CHRONIC OBSTRUCTIVE PULMONARY DISEASE
  3. GABAPENTIN [Concomitant]
     Indication: NEUROPATHY PERIPHERAL
     Route: 048
     Dates: start: 2006
  4. PARIET [Concomitant]
     Route: 048
     Dates: start: 2006
  5. ATACAND [Concomitant]
     Route: 048
     Dates: start: 2006
  6. LEXAPRO [Concomitant]
     Route: 048
     Dates: start: 2010
  7. PREDNISONE [Concomitant]
     Dosage: DOSE WAS DECRESED EVERY WEEK
     Route: 048
  8. INSULIN [Concomitant]
  9. CLOPIDOGREL [Concomitant]

REACTIONS (7)
  - Renal failure [Fatal]
  - Multi-organ failure [Fatal]
  - Sepsis [Fatal]
  - Diabetes mellitus [Fatal]
  - Lung infection [Recovering/Resolving]
  - Renal disorder [Unknown]
  - Cardiac disorder [Unknown]
